FAERS Safety Report 13858102 (Version 3)
Quarter: 2018Q2

REPORT INFORMATION
  Report Type: Report from Study
  Country: CA (occurrence: CA)
  Receive Date: 20170811
  Receipt Date: 20180502
  Transmission Date: 20180711
  Serious: Yes (Other)
  Sender: FDA-Public Use
  Company Number: CA-ORION CORPORATION ORION PHARMA-TREX2017-2411

PATIENT
  Age: 52 Year
  Sex: Male

DRUGS (7)
  1. ENBREL [Suspect]
     Active Substance: ETANERCEPT
     Indication: PSORIASIS
  2. ENBREL [Suspect]
     Active Substance: ETANERCEPT
     Indication: RHEUMATOID ARTHRITIS
     Route: 065
     Dates: start: 20170427
  3. ENBREL [Suspect]
     Active Substance: ETANERCEPT
     Indication: PSORIATIC ARTHROPATHY
  4. ACENAC-P [Concomitant]
     Route: 065
  5. METHOTREXATE (TRADE NAME UNKNOWN) [Suspect]
     Active Substance: METHOTREXATE
     Route: 065
  6. ENBREL [Suspect]
     Active Substance: ETANERCEPT
     Indication: ANKYLOSING SPONDYLITIS
  7. ALLEGRA [Concomitant]
     Active Substance: FEXOFENADINE HYDROCHLORIDE
     Route: 065

REACTIONS (9)
  - Pain [Not Recovered/Not Resolved]
  - Infection [Not Recovered/Not Resolved]
  - Influenza like illness [Not Recovered/Not Resolved]
  - Burning sensation [Not Recovered/Not Resolved]
  - Skin infection [Not Recovered/Not Resolved]
  - Diarrhoea [Not Recovered/Not Resolved]
  - Psoriasis [Not Recovered/Not Resolved]
  - Mobility decreased [Not Recovered/Not Resolved]
  - Pruritus generalised [Not Recovered/Not Resolved]

NARRATIVE: CASE EVENT DATE: 2017
